FAERS Safety Report 23272331 (Version 1)
Quarter: 2023Q4

REPORT INFORMATION
  Report Type: Report from Study
  Country: KR (occurrence: KR)
  Receive Date: 20231207
  Receipt Date: 20231207
  Transmission Date: 20240110
  Serious: Yes (Other)
  Sender: FDA-Public Use
  Company Number: KR-JNJFOC-20231205004

PATIENT
  Sex: Male

DRUGS (1)
  1. SIMPONI [Suspect]
     Active Substance: GOLIMUMAB
     Indication: Product used for unknown indication
     Dosage: LAST USE DATE: 10-FEB-2022
     Route: 058

REACTIONS (1)
  - Acute coronary syndrome [Unknown]

NARRATIVE: CASE EVENT DATE: 20220315
